FAERS Safety Report 17265953 (Version 1)
Quarter: 2020Q1

REPORT INFORMATION
  Report Type: Spontaneous
  Country: CA (occurrence: CA)
  Receive Date: 20200114
  Receipt Date: 20200114
  Transmission Date: 20200409
  Serious: Yes (Death, Other)
  Sender: FDA-Public Use
  Company Number: CA-AUROBINDO-AUR-APL-2020-002185

PATIENT
  Age: 68 Year
  Sex: Male
  Weight: 54 kg

DRUGS (20)
  1. SANDOSTATIN [Suspect]
     Active Substance: OCTREOTIDE ACETATE
     Indication: CARCINOID TUMOUR
     Dosage: 40.0 MILLIGRAM 1 EVERY 1 MONTH
     Route: 030
  2. DILAUDID [Concomitant]
     Active Substance: HYDROMORPHONE HYDROCHLORIDE
     Indication: PRODUCT USED FOR UNKNOWN INDICATION
     Dosage: UNK 1 EVERY 1 DAY
     Route: 048
  3. FUROSEMIDE. [Concomitant]
     Active Substance: FUROSEMIDE
     Indication: PRODUCT USED FOR UNKNOWN INDICATION
     Dosage: 40.0 MILLIGRAM, ONCE A DAY
     Route: 048
  4. SANDOSTATIN [Suspect]
     Active Substance: OCTREOTIDE ACETATE
     Dosage: 40.0 MILLIGRAM 1 EVERY 1 MONTH
     Route: 030
  5. LORAZEPAM. [Concomitant]
     Active Substance: LORAZEPAM
     Indication: ANXIETY
     Dosage: 0.5 MILLIGRAM
     Route: 048
  6. SANDOSTATIN [Suspect]
     Active Substance: OCTREOTIDE ACETATE
     Dosage: 40.0 MILLIGRAM 1 EVERY 2 WEEKS
     Route: 030
  7. SANDOSTATIN [Suspect]
     Active Substance: OCTREOTIDE ACETATE
     Dosage: 40.0 MILLIGRAM 1 EVERY 1 MONTH
     Route: 030
  8. SANDOSTATIN [Suspect]
     Active Substance: OCTREOTIDE ACETATE
     Dosage: 40.0 MILLIGRAM 1 EVERY 2 WEEKS
     Route: 030
  9. L-CYSTEINE [Concomitant]
     Active Substance: CYSTEINE
     Indication: PRODUCT USED FOR UNKNOWN INDICATION
     Dosage: 1 DOSAGE FORM, ONCE A DAY
     Route: 048
  10. SPIRONOLACTONE. [Concomitant]
     Active Substance: SPIRONOLACTONE
     Indication: PRODUCT USED FOR UNKNOWN INDICATION
     Dosage: 25.0 MILLIGRAM, ONCE A DAY
     Route: 048
  11. SANDOSTATIN [Suspect]
     Active Substance: OCTREOTIDE ACETATE
     Dosage: 40.0 MILLIGRAM 1 EVERY 1 MONTH
     Route: 030
  12. METOPROLOL. [Suspect]
     Active Substance: METOPROLOL
     Indication: PRODUCT USED FOR UNKNOWN INDICATION
     Dosage: 25.0 MILLIGRAM, ONCE A DAY
     Route: 048
  13. SANDOSTATIN [Suspect]
     Active Substance: OCTREOTIDE ACETATE
     Dosage: 30.0 MILLIGRAM 1 EVERY 1 MONTH
     Route: 030
  14. SANDOSTATIN [Suspect]
     Active Substance: OCTREOTIDE ACETATE
     Dosage: 20.0 MILLIGRAM 1 EVERY 1 MONTH
     Route: 030
  15. SANDOSTATIN [Suspect]
     Active Substance: OCTREOTIDE ACETATE
     Dosage: UNK 3 EVERY 1 DAY
     Route: 058
  16. QUETIAPINE. [Concomitant]
     Active Substance: QUETIAPINE
     Indication: ANXIETY
     Dosage: 0.5 MILLIGRAM
     Route: 065
  17. SANDOSTATIN [Suspect]
     Active Substance: OCTREOTIDE ACETATE
     Dosage: 30.0 MILLIGRAM 1 EVERY 1 MONTH
     Route: 030
  18. SANDOSTATIN [Suspect]
     Active Substance: OCTREOTIDE ACETATE
     Dosage: 30.0 MILLIGRAM 1 EVERY 1 MONTH
     Route: 030
  19. ACETAMINOPHEN. [Concomitant]
     Active Substance: ACETAMINOPHEN
     Indication: PRODUCT USED FOR UNKNOWN INDICATION
     Dosage: 500 MILLIGRAM
     Route: 065
  20. PANTOPRAZOLE [Suspect]
     Active Substance: PANTOPRAZOLE
     Indication: PRODUCT USED FOR UNKNOWN INDICATION
     Dosage: 40.0 MILLIGRAM, ONCE A DAY
     Route: 048

REACTIONS (53)
  - Fatigue [Fatal]
  - Heart rate decreased [Fatal]
  - Heart rate irregular [Fatal]
  - Palpitations [Fatal]
  - Cardiac disorder [Fatal]
  - Death [Fatal]
  - Injection site reaction [Fatal]
  - Metastases to liver [Fatal]
  - Aphonia [Fatal]
  - Dizziness [Fatal]
  - Ear discomfort [Fatal]
  - Insomnia [Fatal]
  - Sputum discoloured [Fatal]
  - Inappropriate schedule of product administration [Fatal]
  - Asthenia [Fatal]
  - Dyspnoea exertional [Fatal]
  - Muscle spasms [Fatal]
  - Oedema [Fatal]
  - Syringe issue [Fatal]
  - Gait disturbance [Fatal]
  - Injection site pain [Fatal]
  - Neoplasm progression [Fatal]
  - Peripheral swelling [Fatal]
  - Visual impairment [Fatal]
  - Blood pressure increased [Fatal]
  - Body temperature decreased [Fatal]
  - Dyspnoea [Fatal]
  - Erythema [Fatal]
  - Headache [Fatal]
  - Heart rate increased [Fatal]
  - Hypertension [Fatal]
  - Injection site mass [Fatal]
  - Myalgia [Fatal]
  - Nasopharyngitis [Fatal]
  - Sinusitis [Fatal]
  - Swelling [Fatal]
  - Anxiety [Fatal]
  - Hot flush [Fatal]
  - Malaise [Fatal]
  - Nasal discharge discolouration [Fatal]
  - Skin discolouration [Fatal]
  - Throat irritation [Fatal]
  - Upper respiratory tract infection [Fatal]
  - Acne [Fatal]
  - Cough [Fatal]
  - Diarrhoea [Fatal]
  - Dyspepsia [Fatal]
  - Impaired healing [Fatal]
  - Malignant neoplasm progression [Fatal]
  - Productive cough [Fatal]
  - Somnolence [Fatal]
  - Weight decreased [Fatal]
  - Epistaxis [Fatal]
